FAERS Safety Report 11046908 (Version 5)
Quarter: 2016Q1

REPORT INFORMATION
  Report Type: Spontaneous
  Country: US (occurrence: US)
  Receive Date: 20150420
  Receipt Date: 20160217
  Transmission Date: 20160525
  Serious: Yes (Disabling, Other)
  Sender: FDA-Public Use
  Company Number: US-009507513-1504USA015650

PATIENT
  Sex: Male
  Weight: 81.63 kg

DRUGS (4)
  1. FINASTERIDE. [Suspect]
     Active Substance: FINASTERIDE
     Indication: PRODUCT USED FOR UNKNOWN INDICATION
     Dosage: 5 MG, QD
     Route: 048
     Dates: start: 20091116, end: 20100811
  2. IMITREX [Concomitant]
     Active Substance: SUMATRIPTAN SUCCINATE
     Indication: MIGRAINE
     Dosage: UNK
     Route: 065
     Dates: start: 200001, end: 201006
  3. PROSCAR [Suspect]
     Active Substance: FINASTERIDE
     Indication: BENIGN PROSTATIC HYPERPLASIA
     Dosage: 5 MG, QD
     Route: 048
     Dates: start: 20091116, end: 20101217
  4. DOXYCYCLINE. [Concomitant]
     Active Substance: DOXYCYCLINE
     Indication: ROSACEA
     Dosage: UNK, PRN
     Route: 065
     Dates: start: 200001, end: 201007

REACTIONS (27)
  - Aortic aneurysm [Unknown]
  - Myocardial infarction [Unknown]
  - Memory impairment [Unknown]
  - Hypothyroidism [Unknown]
  - Sexual dysfunction [Unknown]
  - Prostate cancer [Not Recovered/Not Resolved]
  - Orgasm abnormal [Not Recovered/Not Resolved]
  - Visual acuity reduced [Unknown]
  - Actinic keratosis [Unknown]
  - Dysphagia [Unknown]
  - Erectile dysfunction [Not Recovered/Not Resolved]
  - Genital atrophy [Not Recovered/Not Resolved]
  - Haemorrhoids [Unknown]
  - Depression [Not Recovered/Not Resolved]
  - Blood testosterone decreased [Unknown]
  - Headache [Unknown]
  - Electron radiation therapy to prostate [Unknown]
  - Arteriosclerosis [Unknown]
  - Deafness [Unknown]
  - Acrochordon [Unknown]
  - Irritable bowel syndrome [Unknown]
  - Nail disorder [Unknown]
  - Gastrointestinal carcinoma [Unknown]
  - Cognitive disorder [Not Recovered/Not Resolved]
  - Anxiety [Unknown]
  - Tinnitus [Unknown]
  - Gynaecomastia [Not Recovered/Not Resolved]

NARRATIVE: CASE EVENT DATE: 200911
